FAERS Safety Report 10256392 (Version 1)
Quarter: 2014Q2

REPORT INFORMATION
  Report Type: Spontaneous
  Country: FR (occurrence: FR)
  Receive Date: 20140624
  Receipt Date: 20140624
  Transmission Date: 20141212
  Serious: Yes (Other)
  Sender: FDA-Public Use
  Company Number: FR-GILEAD-2014-0106468

PATIENT
  Age: 45 Year
  Sex: Male

DRUGS (7)
  1. EVIPLERA [Suspect]
     Indication: HIV INFECTION
     Dosage: 1 DF, QD
     Route: 048
     Dates: start: 20140109, end: 20140205
  2. EVIPLERA [Suspect]
     Dosage: 1 DF, QD
     Route: 048
     Dates: start: 20140410, end: 20140412
  3. TRUVADA [Concomitant]
     Indication: HIV INFECTION
  4. EDURANT [Concomitant]
     Indication: HIV INFECTION
  5. KARDEGIC [Concomitant]
     Indication: ARTERIAL DISORDER
  6. SKENAN [Concomitant]
     Indication: BACK PAIN
  7. ACTISKENAN [Concomitant]
     Indication: BACK PAIN

REACTIONS (5)
  - Rectal haemorrhage [Recovered/Resolved]
  - Abdominal pain [Recovered/Resolved]
  - Nausea [Recovered/Resolved]
  - Vomiting [Recovered/Resolved]
  - Hepatic enzyme increased [Recovered/Resolved]
